FAERS Safety Report 20108522 (Version 3)
Quarter: 2022Q2

REPORT INFORMATION
  Report Type: Report from Study
  Country: DE (occurrence: DE)
  Receive Date: 20211124
  Receipt Date: 20220628
  Transmission Date: 20220721
  Serious: Yes (Hospitalization)
  Sender: FDA-Public Use
  Company Number: DE-TAKEDA-2021TUS074002

PATIENT
  Age: 67 Year
  Sex: Male

DRUGS (9)
  1. TEDUGLUTIDE [Suspect]
     Active Substance: TEDUGLUTIDE
     Indication: Short-bowel syndrome
     Dosage: 4.6 MILLIGRAM, QD
     Route: 042
     Dates: start: 201803
  2. TEDUGLUTIDE [Suspect]
     Active Substance: TEDUGLUTIDE
     Indication: Short-bowel syndrome
     Dosage: 4.6 MILLIGRAM, QD
     Route: 042
     Dates: start: 201803
  3. TEDUGLUTIDE [Suspect]
     Active Substance: TEDUGLUTIDE
     Indication: Short-bowel syndrome
     Dosage: 4.6 MILLIGRAM, QD
     Route: 042
     Dates: start: 201803
  4. TEDUGLUTIDE [Suspect]
     Active Substance: TEDUGLUTIDE
     Indication: Short-bowel syndrome
     Dosage: 4.6 MILLIGRAM, QD
     Route: 042
     Dates: start: 201803
  5. ESOMEPRAZOLE [Concomitant]
     Active Substance: ESOMEPRAZOLE
     Indication: Prophylaxis
     Dosage: 40 MILLIGRAM, QD
     Route: 048
     Dates: start: 20210621
  6. ALPRAZOLAM [Concomitant]
     Active Substance: ALPRAZOLAM
     Indication: Prophylaxis
     Dosage: 0.50 MILLIGRAM, QD
     Route: 048
     Dates: start: 20210621
  7. ALPRAZOLAM [Concomitant]
     Active Substance: ALPRAZOLAM
     Indication: Anxiety
  8. USTEKINUMAB [Concomitant]
     Active Substance: USTEKINUMAB
     Indication: Crohn^s disease
     Dosage: 130 MILLIGRAM, Q8WEEKS
     Route: 042
     Dates: start: 20210721
  9. REMICADE [Concomitant]
     Active Substance: INFLIXIMAB
     Indication: Crohn^s disease
     Dosage: 420 MILLIGRAM, Q8WEEKS
     Route: 042
     Dates: start: 20140214

REACTIONS (1)
  - Neuropathic ulcer [Recovered/Resolved]

NARRATIVE: CASE EVENT DATE: 20210621
